FAERS Safety Report 9960429 (Version 1)
Quarter: 2014Q1

REPORT INFORMATION
  Report Type: Spontaneous
  Country: US (occurrence: None)
  Receive Date: 20140304
  Receipt Date: 20140304
  Transmission Date: 20141002
  Serious: Yes (Death, Other)
  Sender: FDA-Public Use
  Company Number: None

PATIENT
  Age: 72 Year
  Sex: Male
  Weight: 72.58 kg

DRUGS (1)
  1. SERTRALINE [Suspect]
     Indication: DEPRESSION
     Route: 048
     Dates: start: 1998

REACTIONS (12)
  - Sudden death [None]
  - Catheter site haematoma [None]
  - Post procedural haematoma [None]
  - Anaemia [None]
  - Vascular occlusion [None]
  - Erythema [None]
  - Confusional state [None]
  - Convulsion [None]
  - Cardio-respiratory arrest [None]
  - Toxicity to various agents [None]
  - Hyponatraemia [None]
  - Incorrect dose administered [None]
